FAERS Safety Report 11270881 (Version 1)
Quarter: 2015Q3

REPORT INFORMATION
  Report Type: Spontaneous
  Country: TN (occurrence: TN)
  Receive Date: 20150714
  Receipt Date: 20150714
  Transmission Date: 20151125
  Serious: Yes (Other)
  Sender: FDA-Public Use
  Company Number: TN-FRESENIUS KABI-FK201503252

PATIENT
  Age: 9 Year
  Sex: Male

DRUGS (9)
  1. DEXAMETHASONE INJECTION (MANUFACTURER UNKNOWN) [Suspect]
     Active Substance: DEXAMETHASONE
     Indication: CHEMOTHERAPY
     Route: 065
     Dates: start: 20130416
  2. HEMISUCCINATE HYDROCORTISONE [Suspect]
     Active Substance: HYDROCORTISONE HEMISUCCINATE
     Route: 037
  3. ONCOVIN [Suspect]
     Active Substance: VINCRISTINE SULFATE
     Indication: CHEMOTHERAPY
     Route: 065
  4. HEMISUCCINATE HYDROCORTISONE [Suspect]
     Active Substance: HYDROCORTISONE HEMISUCCINATE
     Indication: B PRECURSOR TYPE ACUTE LEUKAEMIA
     Route: 037
  5. ARACYTINE [Suspect]
     Active Substance: CYTARABINE
     Indication: B PRECURSOR TYPE ACUTE LEUKAEMIA
     Route: 037
  6. METHOTREXATE BIODIN [Suspect]
     Active Substance: METHOTREXATE SODIUM
     Indication: B PRECURSOR TYPE ACUTE LEUKAEMIA
     Route: 037
  7. METHOTREXATE BIODIN [Suspect]
     Active Substance: METHOTREXATE SODIUM
     Route: 037
  8. ARACYTINE [Suspect]
     Active Substance: CYTARABINE
     Route: 037
  9. ADRIBLASTINE [Suspect]
     Active Substance: DOXORUBICIN
     Indication: CHEMOTHERAPY
     Route: 037

REACTIONS (1)
  - Posterior reversible encephalopathy syndrome [Recovered/Resolved]
